FAERS Safety Report 5877449-3 (Version None)
Quarter: 2008Q3

REPORT INFORMATION
  Report Type: 
  Country: None (occurrence: None)
  Receive Date: 20080909
  Receipt Date: 20080904
  Transmission Date: 20090109
  Serious: Yes (Death)
  Sender: FDA-Public Use
  Company Number: 1000000161

PATIENT
  Age: 46 Year
  Sex: Female
  Weight: 97.5234 kg

DRUGS (3)
  1. CAMPRAL [Suspect]
     Indication: ALCOHOL ABUSE
     Dosage: 1998 MG (666 MG, 3 IN 1 D), ORAL
     Route: 048
     Dates: start: 20050110, end: 20050211
  2. WELLBUTRIN [Concomitant]
  3. DEXTROMETHORPHAN HYDROBROMIDE [Concomitant]

REACTIONS (3)
  - ARRHYTHMIA [None]
  - FALL [None]
  - SUDDEN CARDIAC DEATH [None]
